FAERS Safety Report 7261279-4 (Version None)
Quarter: 2011Q1

REPORT INFORMATION
  Report Type: 
  Country: None (occurrence: None)
  Receive Date: 20110130
  Receipt Date: 20101001
  Transmission Date: 20110831
  Serious: No
  Sender: FDA-Public Use
  Company Number: US-ABBOTT-10P-163-0674684-00

PATIENT
  Sex: Female
  Weight: 45.4 kg

DRUGS (3)
  1. TYLENOL-500 [Concomitant]
     Indication: HEADACHE
  2. HUMIRA [Suspect]
     Indication: JUVENILE ARTHRITIS
     Dates: start: 20080501, end: 20100401
  3. HUMIRA [Suspect]
     Dates: start: 20100901

REACTIONS (5)
  - PHARYNGITIS STREPTOCOCCAL [None]
  - EYE PRURITUS [None]
  - H1N1 INFLUENZA [None]
  - UPPER RESPIRATORY TRACT INFECTION [None]
  - OCULAR HYPERAEMIA [None]
